FAERS Safety Report 15367797 (Version 2)
Quarter: 2018Q3

REPORT INFORMATION
  Report Type: Spontaneous
  Country: PL (occurrence: PL)
  Receive Date: 20180910
  Receipt Date: 20180921
  Transmission Date: 20181010
  Serious: Yes (Other)
  Sender: FDA-Public Use
  Company Number: PL-MYLANLABS-2018M1066514

PATIENT
  Age: 46 Year
  Sex: Female

DRUGS (11)
  1. QUETIAPINE. [Suspect]
     Active Substance: QUETIAPINE
     Indication: MANIA
     Dosage: UNK
     Route: 048
  2. TETRABENAZINE. [Suspect]
     Active Substance: TETRABENAZINE
     Dosage: 100 MG, UNK
  3. ARIPIPRAZOLE. [Suspect]
     Active Substance: ARIPIPRAZOLE
     Indication: MANIA
     Dosage: UNK
  4. TETRABENAZINE. [Suspect]
     Active Substance: TETRABENAZINE
     Dosage: 12.5 MG, QD
  5. TETRABENAZINE. [Suspect]
     Active Substance: TETRABENAZINE
     Dosage: 75 MG, QD
  6. TETRABENAZINE. [Suspect]
     Active Substance: TETRABENAZINE
     Dosage: 62.5 MG, QD
  7. PERPHENAZINE. [Suspect]
     Active Substance: PERPHENAZINE
     Indication: MANIA
     Dosage: UNK
  8. TETRABENAZINE. [Suspect]
     Active Substance: TETRABENAZINE
     Indication: PRODUCT USED FOR UNKNOWN INDICATION
     Dosage: 137.5 MG, QD
  9. CLOZAPINE. [Suspect]
     Active Substance: CLOZAPINE
     Indication: TARDIVE DYSKINESIA
     Dosage: UNK
  10. LAMOTRIGINE. [Suspect]
     Active Substance: LAMOTRIGINE
     Indication: BIPOLAR DISORDER
     Dosage: 200 MG, QD
  11. TETRABENAZINE. [Suspect]
     Active Substance: TETRABENAZINE
     Dosage: 87.5 MG, QD

REACTIONS (3)
  - Hyponatraemia [Unknown]
  - Hallucination [Unknown]
  - Tardive dyskinesia [Recovered/Resolved]

NARRATIVE: CASE EVENT DATE: 2008
